FAERS Safety Report 9258104 (Version 2)
Quarter: 2013Q2

REPORT INFORMATION
  Report Type: Spontaneous
  Country: RS (occurrence: RS)
  Receive Date: 20130426
  Receipt Date: 20130523
  Transmission Date: 20140414
  Serious: Yes (Life-Threatening, Other)
  Sender: FDA-Public Use
  Company Number: RS-009507513-1304SRB015739

PATIENT
  Age: 56 Year
  Sex: Female
  Weight: 85 kg

DRUGS (6)
  1. TIENAM I.V. [Suspect]
     Dosage: 500 MG ON 6 HOURS
     Route: 042
     Dates: start: 20130306, end: 20130313
  2. VANCOMYCIN [Concomitant]
     Indication: SEPSIS
     Dosage: 1 G ON 12H
     Route: 042
  3. FRAXIPARINE [Concomitant]
  4. RANISAN [Concomitant]
  5. PRESOLOL (LABETALOL HYDROCHLORIDE) [Concomitant]
  6. TRITACE [Concomitant]

REACTIONS (1)
  - Epilepsy [Recovered/Resolved]
